FAERS Safety Report 12580904 (Version 2)
Quarter: 2016Q4

REPORT INFORMATION
  Report Type: Spontaneous
  Country: GB (occurrence: GB)
  Receive Date: 20160721
  Receipt Date: 20161215
  Transmission Date: 20170207
  Serious: Yes (Disabling)
  Sender: FDA-Public Use
  Company Number: GB-CONCORDIA PHARMACEUTICALS INC.-GSH201607-003643

PATIENT
  Age: 84 Year
  Sex: Male
  Weight: 69.85 kg

DRUGS (10)
  1. AZOPT [Concomitant]
     Active Substance: BRINZOLAMIDE
     Dosage: LEFT EYE
     Route: 050
  2. RANITIDINE. [Concomitant]
     Active Substance: RANITIDINE
  3. AMLODIPINE [Concomitant]
     Active Substance: AMLODIPINE BESYLATE
  4. SIMVASTATIN. [Concomitant]
     Active Substance: SIMVASTATIN
     Dosage: AT NIGHT.
  5. PREDNISOLONE. [Suspect]
     Active Substance: PREDNISOLONE
     Indication: PEMPHIGOID
     Route: 048
     Dates: start: 20160415
  6. LOSARTAN. [Concomitant]
     Active Substance: LOSARTAN
  7. PREDNISOLONE. [Suspect]
     Active Substance: PREDNISOLONE
     Indication: PEMPHIGOID
  8. FINASTERIDE. [Concomitant]
     Active Substance: FINASTERIDE
  9. PREDNISOLONE. [Suspect]
     Active Substance: PREDNISOLONE
     Indication: PEMPHIGOID
  10. DUOTRAV [Concomitant]
     Active Substance: TIMOLOL MALEATE\TRAVOPROST
     Dosage: 1 DROP EACH EYE.
     Route: 050

REACTIONS (10)
  - Dyspnoea [Recovered/Resolved]
  - Malaise [Recovered/Resolved]
  - Balance disorder [Recovered/Resolved]
  - Oedema peripheral [Not Recovered/Not Resolved]
  - Skin atrophy [Recovered/Resolved]
  - Abnormal behaviour [Recovered/Resolved]
  - Contusion [Recovered/Resolved]
  - Swelling face [Recovered/Resolved]
  - Muscular weakness [Recovered/Resolved]
  - Rhinorrhoea [Recovered/Resolved]

NARRATIVE: CASE EVENT DATE: 20160614
